FAERS Safety Report 17717330 (Version 2)
Quarter: 2020Q2

REPORT INFORMATION
  Report Type: Spontaneous
  Country: US (occurrence: US)
  Receive Date: 20200428
  Receipt Date: 20200526
  Transmission Date: 20200714
  Serious: No
  Sender: FDA-Public Use
  Company Number: US-GILEAD-2020-0461372

PATIENT
  Age: 67 Year
  Sex: Female

DRUGS (11)
  1. OMEPRAZOLE. [Concomitant]
     Active Substance: OMEPRAZOLE
  2. CHANTIX [Concomitant]
     Active Substance: VARENICLINE TARTRATE
  3. SOFOSBUVIR;VELPATASVIR [Suspect]
     Active Substance: SOFOSBUVIR\VELPATASVIR
     Indication: HEPATITIS C
     Dosage: 1 DOSAGE FORM, QD
     Route: 048
     Dates: start: 20200214, end: 202005
  4. SEROQUEL [Concomitant]
     Active Substance: QUETIAPINE FUMARATE
  5. GABAPENTIN. [Suspect]
     Active Substance: GABAPENTIN
     Indication: NERVE COMPRESSION
     Dosage: 300 MG, TID
     Route: 065
  6. SYMBICORT [Suspect]
     Active Substance: BUDESONIDE\FORMOTEROL FUMARATE DIHYDRATE
     Indication: PRODUCT USED FOR UNKNOWN INDICATION
     Dosage: 1 DOSAGE FORM, BID
     Route: 055
  7. IBUPROFEN. [Concomitant]
     Active Substance: IBUPROFEN
  8. TRAMADOL. [Concomitant]
     Active Substance: TRAMADOL
  9. PROAIR [FLUTICASONE PROPIONATE] [Concomitant]
     Active Substance: FLUTICASONE PROPIONATE
  10. GAVISCON [ALGELDRATE;SODIUM ALGINATE] [Concomitant]
     Active Substance: ALGELDRATE\SODIUM ALGINATE
  11. TYLENOL [Concomitant]
     Active Substance: ACETAMINOPHEN

REACTIONS (1)
  - Tremor [Recovered/Resolved]

NARRATIVE: CASE EVENT DATE: 20200420
